FAERS Safety Report 24560025 (Version 4)
Quarter: 2025Q2

REPORT INFORMATION
  Report Type: Spontaneous
  Country: JP (occurrence: JP)
  Receive Date: 20241029
  Receipt Date: 20250616
  Transmission Date: 20250717
  Serious: Yes (Death, Hospitalization)
  Sender: ALEXION PHARMACEUTICALS
  Company Number: JP-ASTRAZENECA-240105166_013120_P_1

PATIENT
  Age: 75 Year
  Weight: 57 kg

DRUGS (13)
  1. DURVALUMAB [Suspect]
     Active Substance: DURVALUMAB
     Indication: Hepatocellular carcinoma
     Dosage: 1500 MILLIGRAM, Q4W
  2. TREMELIMUMAB [Suspect]
     Active Substance: TREMELIMUMAB
     Indication: Hepatocellular carcinoma
  3. RABEPRAZOLE SODIUM [Suspect]
     Active Substance: RABEPRAZOLE SODIUM
  4. VALSARTAN [Concomitant]
     Active Substance: VALSARTAN
  5. NIFEDIPINE [Concomitant]
     Active Substance: NIFEDIPINE
  6. CALONAL [Concomitant]
     Active Substance: ACETAMINOPHEN
  7. CALONAL [Concomitant]
     Active Substance: ACETAMINOPHEN
  8. HYDROMORPHONE HYDROCHLORIDE [Concomitant]
     Active Substance: HYDROMORPHONE HYDROCHLORIDE
  9. HYDROMORPHONE HYDROCHLORIDE [Concomitant]
     Active Substance: HYDROMORPHONE HYDROCHLORIDE
  10. AMINO ACIDS, SOURCE UNSPECIFIED [Concomitant]
     Active Substance: AMINO ACIDS, SOURCE UNSPECIFIED
  11. AMINO ACIDS, SOURCE UNSPECIFIED [Concomitant]
     Active Substance: AMINO ACIDS, SOURCE UNSPECIFIED
  12. BARACLUDE [Concomitant]
     Active Substance: ENTECAVIR
  13. BARACLUDE [Concomitant]
     Active Substance: ENTECAVIR

REACTIONS (2)
  - Myocardial infarction [Fatal]
  - Tubulointerstitial nephritis [Fatal]
